FAERS Safety Report 15455928 (Version 2)
Quarter: 2018Q4

REPORT INFORMATION
  Report Type: Spontaneous
  Country: GB (occurrence: GB)
  Receive Date: 20181002
  Receipt Date: 20181009
  Transmission Date: 20190204
  Serious: Yes (Hospitalization, Other)
  Sender: FDA-Public Use
  Company Number: GB-MYLANLABS-2018M1071286

PATIENT
  Age: 72 Year
  Sex: Female
  Weight: 102 kg

DRUGS (4)
  1. IMIPRAMINE [Concomitant]
     Active Substance: IMIPRAMINE
     Indication: PAIN
     Dosage: UNK, QD
     Route: 048
     Dates: start: 2009
  2. GABAPENTIN. [Suspect]
     Active Substance: GABAPENTIN
     Indication: BACK PAIN
     Dosage: 300 MILLIGRAM DAILY; INCREASED BY 100 MG EVERY THREE DAYS UNTIL 1200 MG THREE
     Route: 065
     Dates: start: 20170814, end: 201709
  3. ADCAL D3 [Concomitant]
     Active Substance: CALCIUM CARBONATE\CHOLECALCIFEROL
     Indication: OSTEOPENIA
     Dosage: UNK, QD
     Route: 048
     Dates: start: 2010
  4. OMEPRAZOLE. [Concomitant]
     Active Substance: OMEPRAZOLE
     Indication: PRODUCT USED FOR UNKNOWN INDICATION
     Dosage: 20 MILLIGRAM DAILY
     Route: 048
     Dates: start: 2011

REACTIONS (3)
  - Hypoglycaemia [Recovered/Resolved]
  - Loss of consciousness [Recovered/Resolved]
  - Drug ineffective [Unknown]

NARRATIVE: CASE EVENT DATE: 20170917
